FAERS Safety Report 18040512 (Version 3)
Quarter: 2020Q3

REPORT INFORMATION
  Report Type: Report from Study
  Country: US (occurrence: US)
  Receive Date: 20200717
  Receipt Date: 20200827
  Transmission Date: 20201103
  Serious: Yes (Hospitalization)
  Sender: FDA-Public Use
  Company Number: US-BAUSCH-BL-2020-020211

PATIENT
  Age: 62 Year
  Sex: Male
  Weight: 121.67 kg

DRUGS (10)
  1. METOPROLOL. [Concomitant]
     Active Substance: METOPROLOL
     Indication: PRODUCT USED FOR UNKNOWN INDICATION
  2. TRAMADOL. [Concomitant]
     Active Substance: TRAMADOL
     Indication: PRODUCT USED FOR UNKNOWN INDICATION
  3. TESTOSTERONE. [Concomitant]
     Active Substance: TESTOSTERONE
     Indication: PRODUCT USED FOR UNKNOWN INDICATION
  4. LOSARTAN. [Concomitant]
     Active Substance: LOSARTAN
     Indication: PRODUCT USED FOR UNKNOWN INDICATION
  5. SILIQ [Suspect]
     Active Substance: BRODALUMAB
     Indication: PSORIASIS
     Dosage: SYRINGE, WEEKS 0, 1, AND 2
     Route: 058
     Dates: start: 20190501, end: 201905
  6. SILIQ [Suspect]
     Active Substance: BRODALUMAB
     Dosage: FOLLOWED BY 210 MG EVERY 2 WEEKS
     Route: 058
     Dates: start: 201905, end: 2020
  7. SILIQ [Suspect]
     Active Substance: BRODALUMAB
     Route: 058
     Dates: start: 20200331
  8. GABAPENTIN. [Concomitant]
     Active Substance: GABAPENTIN
     Indication: PRODUCT USED FOR UNKNOWN INDICATION
  9. ELIQUIS [Concomitant]
     Active Substance: APIXABAN
     Indication: PRODUCT USED FOR UNKNOWN INDICATION
  10. MELOXICAM. [Concomitant]
     Active Substance: MELOXICAM
     Indication: PRODUCT USED FOR UNKNOWN INDICATION

REACTIONS (5)
  - Fall [Unknown]
  - Spinal operation [Unknown]
  - Psoriasis [Recovering/Resolving]
  - Intentional product use issue [Unknown]
  - Back injury [Unknown]

NARRATIVE: CASE EVENT DATE: 201912
